FAERS Safety Report 6015502-4 (Version None)
Quarter: 2008Q4

REPORT INFORMATION
  Report Type: 
  Country: None (occurrence: None)
  Receive Date: 20081222
  Receipt Date: 20081212
  Transmission Date: 20090506
  Serious: Yes (Death)
  Sender: FDA-Public Use
  Company Number: JP-WYE-H07311208

PATIENT

DRUGS (1)
  1. ANCARON [Suspect]
     Dosage: NOT PROVIDED
     Route: 048

REACTIONS (1)
  - DEATH [None]
